FAERS Safety Report 5900324-2 (Version None)
Quarter: 2008Q3

REPORT INFORMATION
  Report Type: 
  Country: None (occurrence: None)
  Receive Date: 20080926
  Receipt Date: 20080915
  Transmission Date: 20090109
  Serious: Yes (Other)
  Sender: FDA-Public Use
  Company Number: US-ROCHE-587309

PATIENT
  Age: 10 Year
  Sex: Female

DRUGS (15)
  1. NAPROXEN [Suspect]
     Route: 065
  2. RITUXIMAB [Suspect]
     Dosage: DOSE REPORTED AS TWO DOSES.PARTIALLY EFFECTIVE
     Route: 065
  3. IBUPROFEN [Suspect]
     Route: 065
  4. CORTICOSTEROIDS [Suspect]
     Route: 065
  5. METHOTREXATE [Suspect]
     Route: 065
  6. METHOTREXATE [Suspect]
     Route: 065
  7. ETANERCEPT [Suspect]
     Route: 065
  8. INFLIXIMAB [Suspect]
     Dosage: THREE DOSES
     Route: 065
  9. LEFLUNOMIDE [Suspect]
     Route: 065
  10. ANAKINRA [Suspect]
     Route: 065
  11. CYCLOPHOSPHAMIDE [Suspect]
     Dosage: DOSE REPORTED: FIVE MONTHLY DOSES
     Route: 042
  12. THALIDOMIDE [Suspect]
     Route: 065
  13. PREDNISONE [Suspect]
     Dosage: LOW DOSE DAILY
     Route: 065
  14. ADALIMUMAB [Suspect]
     Route: 065
  15. METHADONE HCL [Suspect]
     Route: 065

REACTIONS (1)
  - HODGKIN'S DISEASE [None]
